FAERS Safety Report 8391366-9 (Version None)
Quarter: 2012Q2

REPORT INFORMATION
  Report Type: 
  Country: None (occurrence: None)
  Receive Date: 20120529
  Receipt Date: 20120524
  Transmission Date: 20120825
  Serious: Yes (Hospitalization)
  Sender: FDA-Public Use
  Company Number: DE-AMGEN-DEUSP2012013496

PATIENT

DRUGS (5)
  1. PROLIA [Suspect]
  2. PROLIA [Suspect]
  3. PROLIA [Suspect]
     Indication: PRODUCT USED FOR UNKNOWN INDICATION
  4. PROLIA [Suspect]
  5. PROLIA [Suspect]

REACTIONS (4)
  - ERYTHEMA [None]
  - SKIN REACTION [None]
  - PRURITUS [None]
  - DERMATOSIS [None]
